FAERS Safety Report 4290283-3 (Version None)
Quarter: 2004Q1

REPORT INFORMATION
  Report Type: 
  Country: None (occurrence: None)
  Receive Date: 20040209
  Receipt Date: 20040121
  Transmission Date: 20041129
  Serious: No
  Sender: FDA-Public Use
  Company Number: 20031631

PATIENT
  Sex: Male

DRUGS (1)
  1. LIORESAL [Suspect]
     Indication: MUSCLE SPASTICITY
     Dosage: UNK MCG, DAILY, INTRATHECAL
     Route: 037

REACTIONS (5)
  - DISEASE RECURRENCE [None]
  - FALL [None]
  - MUSCLE SPASTICITY [None]
  - RED BLOOD CELLS CSF POSITIVE [None]
  - REFLEXES ABNORMAL [None]
